FAERS Safety Report 10186142 (Version 1)
Quarter: 2014Q2

REPORT INFORMATION
  Report Type: Spontaneous
  Country: US (occurrence: US)
  Receive Date: 20140521
  Receipt Date: 20140521
  Transmission Date: 20141212
  Serious: No
  Sender: FDA-Public Use
  Company Number: US-PFIZER INC-2014135594

PATIENT
  Sex: Female

DRUGS (1)
  1. CLEOCIN [Suspect]
     Dosage: 150 MG, UNK

REACTIONS (1)
  - No adverse event [Unknown]
